FAERS Safety Report 24467016 (Version 3)
Quarter: 2025Q1

REPORT INFORMATION
  Report Type: Spontaneous
  Country: LV (occurrence: DK)
  Receive Date: 20241018
  Receipt Date: 20250113
  Transmission Date: 20250408
  Serious: Yes (Death, Life-Threatening, Hospitalization, Other)
  Sender: VERTEX
  Company Number: DK-VERTEX PHARMACEUTICALS-2024-016031

PATIENT
  Age: 17 Year
  Sex: Male

DRUGS (4)
  1. ELEXACAFTOR\IVACAFTOR\TEZACAFTOR [Suspect]
     Active Substance: ELEXACAFTOR\IVACAFTOR\TEZACAFTOR
     Indication: Cystic fibrosis
     Route: 048
  2. ELEXACAFTOR\IVACAFTOR\TEZACAFTOR [Suspect]
     Active Substance: ELEXACAFTOR\IVACAFTOR\TEZACAFTOR
     Dosage: 75MG IVA / 50MG  TEZA/ 100MG ELEXA (2 TABS IN AM)
     Route: 048
     Dates: start: 20231018
  3. KALYDECO [Suspect]
     Active Substance: IVACAFTOR
     Indication: Cystic fibrosis
     Route: 048
  4. KALYDECO [Suspect]
     Active Substance: IVACAFTOR
     Dosage: 1 TAB IN EVENING
     Route: 048
     Dates: start: 20231018

REACTIONS (3)
  - Completed suicide [Fatal]
  - Mood swings [Unknown]
  - Depression [Unknown]

NARRATIVE: CASE EVENT DATE: 20240901
